FAERS Safety Report 16858426 (Version 1)
Quarter: 2019Q3

REPORT INFORMATION
  Report Type: Other
  Country: None (occurrence: NL)
  Receive Date: 20190926
  Receipt Date: 20190926
  Transmission Date: 20191005
  Serious: Yes (Life-Threatening, Hospitalization)
  Sender: FDA-Public Use
  Company Number: NL-NOSTRUM LABORATORIES, INC.-2074965

PATIENT
  Age: 45 Year
  Sex: Female

DRUGS (1)
  1. METFORMIN HYDROCHLORIDE EXTENDED-RELEASE [Suspect]
     Active Substance: METFORMIN HYDROCHLORIDE
     Indication: TYPE 2 DIABETES MELLITUS
     Route: 048

REACTIONS (5)
  - Hypotension [Recovered/Resolved]
  - Loss of consciousness [Recovered/Resolved]
  - Lactic acidosis [Recovered/Resolved]
  - Acute kidney injury [Recovered/Resolved]
  - Respiratory distress [Recovered/Resolved]
